FAERS Safety Report 9058415 (Version 1)
Quarter: 2013Q1

REPORT INFORMATION
  Report Type: Spontaneous
  Country: US (occurrence: None)
  Receive Date: 20130118
  Receipt Date: 20130118
  Transmission Date: 20140127
  Serious: Yes (Death)
  Sender: FDA-Public Use
  Company Number: NMS-00067

PATIENT
  Age: 45 Year
  Sex: Male

DRUGS (5)
  1. NITROGLYCERIN [Suspect]
  2. ATORVASTATIN/AMLODIPINE [Suspect]
  3. GLYBURIDE\METFORMIN [Suspect]
  4. HYDROCHLOROTHIAZIDE/LOSARTAN [Suspect]
  5. LISINOPRIL [Suspect]

REACTIONS (1)
  - Completed suicide [None]
